FAERS Safety Report 16945645 (Version 2)
Quarter: 2019Q4

REPORT INFORMATION
  Report Type: Spontaneous
  Country: US (occurrence: US)
  Receive Date: 20191022
  Receipt Date: 20191113
  Transmission Date: 20200122
  Serious: Yes (Death, Life-Threatening, Hospitalization, Other)
  Sender: FDA-Public Use
  Company Number: US-MYLANLABS-2019M1100127

PATIENT
  Age: 72 Year
  Sex: Male
  Weight: 86 kg

DRUGS (21)
  1. LEVETIRACETAM. [Concomitant]
     Active Substance: LEVETIRACETAM
     Indication: HAEMODYNAMIC INSTABILITY
     Dosage: IN FLIGHT
     Route: 040
  2. EPINEPHRINE. [Suspect]
     Active Substance: EPINEPHRINE
     Indication: HAEMODYNAMIC INSTABILITY
     Route: 042
  3. SODIUM BICARBONATE. [Suspect]
     Active Substance: SODIUM BICARBONATE
     Indication: HAEMODYNAMIC INSTABILITY
     Dosage: BOLUSES OF SODIUM BICARBONATE
     Route: 040
  4. PROPOFOL. [Concomitant]
     Active Substance: PROPOFOL
     Indication: GENERALISED TONIC-CLONIC SEIZURE
  5. SODIUM CHLORIDE. [Suspect]
     Active Substance: SODIUM CHLORIDE
     Indication: HAEMODYNAMIC INSTABILITY
     Dosage: 3 LITER
     Route: 042
  6. SODIUM BICARBONATE. [Suspect]
     Active Substance: SODIUM BICARBONATE
     Dosage: IN FLIGHT, THE PATIENT RECEIVED 5 MORE 50-MEQ AMPULES
     Route: 042
  7. NOREPINEPHRINE. [Suspect]
     Active Substance: NOREPINEPHRINE
     Indication: HAEMODYNAMIC INSTABILITY
     Dosage: 0.1 MILLIGRAM/KILOGRAM, QMINUTE
     Route: 042
  8. MIDAZOLAM [Concomitant]
     Active Substance: MIDAZOLAM HYDROCHLORIDE
     Dosage: IN FLIGHT, THE PATIENT RECEIVED 5 MORE 2.5-MG DOSES
     Route: 042
  9. PROPOFOL. [Concomitant]
     Active Substance: PROPOFOL
     Indication: HAEMODYNAMIC INSTABILITY
     Route: 065
  10. NOREPINEPHRINE. [Suspect]
     Active Substance: NOREPINEPHRINE
     Dosage: THE NOREPINEPHRINE DRIP WAS AGGRESSIVELY TITRATED
     Route: 041
  11. DOPAMINE [Suspect]
     Active Substance: DOPAMINE HYDROCHLORIDE
     Indication: HAEMODYNAMIC INSTABILITY
     Route: 042
  12. MIDAZOLAM [Concomitant]
     Active Substance: MIDAZOLAM HYDROCHLORIDE
     Indication: GENERALISED TONIC-CLONIC SEIZURE
     Dosage: 2.5 MILLIGRAM
     Route: 040
  13. MIDAZOLAM [Concomitant]
     Active Substance: MIDAZOLAM HYDROCHLORIDE
     Dosage: 5 DOSAGE FORM
     Route: 042
  14. SODIUM CHLORIDE. [Suspect]
     Active Substance: SODIUM CHLORIDE
     Dosage: BOLUSES OF HYPERTONIC SALINE WERE ADMINISTERED
     Route: 040
  15. FAT EMULSION NOS [Suspect]
     Active Substance: EGG PHOSPHOLIPIDS\SAFFLOWER OIL\SOYBEAN OIL
     Indication: HAEMODYNAMIC INSTABILITY
     Route: 042
  16. SODIUM BICARBONATE. [Suspect]
     Active Substance: SODIUM BICARBONATE
     Dosage: ADDITIONAL BOLUSES
     Route: 040
  17. LORAZEPAM. [Concomitant]
     Active Substance: LORAZEPAM
     Indication: HAEMODYNAMIC INSTABILITY
     Dosage: BOLUS
     Route: 042
  18. MIDAZOLAM [Concomitant]
     Active Substance: MIDAZOLAM HYDROCHLORIDE
     Dosage: IN ICU
     Route: 041
  19. LORAZEPAM. [Concomitant]
     Active Substance: LORAZEPAM
     Indication: GENERALISED TONIC-CLONIC SEIZURE
     Dosage: ANOTHER 1-MG INTRAVENOUS PUSH
     Route: 042
  20. LEVETIRACETAM. [Concomitant]
     Active Substance: LEVETIRACETAM
     Indication: GENERALISED TONIC-CLONIC SEIZURE
     Dosage: LOADING DOSE IN ICU
     Route: 065
  21. LEVETIRACETAM. [Concomitant]
     Active Substance: LEVETIRACETAM
     Dosage: IN THE ICU
     Route: 041

REACTIONS (1)
  - Drug ineffective [Fatal]
